FAERS Safety Report 24134502 (Version 5)
Quarter: 2025Q3

REPORT INFORMATION
  Report Type: Spontaneous
  Country: US (occurrence: US)
  Receive Date: 20240725
  Receipt Date: 20250930
  Transmission Date: 20251020
  Serious: No
  Sender: BRISTOL-MYERS SQUIBB COMPANY
  Company Number: US-BRISTOL-MYERS SQUIBB COMPANY-2024-114143

PATIENT
  Age: 13 Year
  Sex: Male

DRUGS (3)
  1. THALOMID [Suspect]
     Active Substance: THALIDOMIDE
     Indication: Thalassaemia beta
     Dates: start: 202008
  2. THALOMID [Suspect]
     Active Substance: THALIDOMIDE
     Dates: start: 202008
  3. THALOMID [Suspect]
     Active Substance: THALIDOMIDE
     Dates: start: 202008

REACTIONS (5)
  - Poor quality sleep [Unknown]
  - Blood bilirubin increased [Unknown]
  - Blood triglycerides increased [Unknown]
  - Cough [Recovering/Resolving]
  - Blood urine present [Unknown]

NARRATIVE: CASE EVENT DATE: 20240701
